FAERS Safety Report 10495236 (Version 1)
Quarter: 2014Q3

REPORT INFORMATION
  Report Type: Spontaneous
  Country: US (occurrence: None)
  Receive Date: 20140815
  Receipt Date: 20140815
  Transmission Date: 20150326
  Serious: Yes (Other)
  Sender: FDA-Public Use
  Company Number: ADR-2008-5414

PATIENT
  Sex: Male

DRUGS (1)
  1. LIORESAL [Suspect]
     Active Substance: BACLOFEN
     Indication: MUSCLE SPASTICITY
     Dosage: UNK MCG, DAILY, INTRATH
     Route: 037

REACTIONS (4)
  - Hypertonia [None]
  - Weight decreased [None]
  - Decreased appetite [None]
  - Insomnia [None]
